FAERS Safety Report 7482605-7 (Version None)
Quarter: 2011Q2

REPORT INFORMATION
  Report Type: 
  Country: None (occurrence: None)
  Receive Date: 20110516
  Receipt Date: 20110502
  Transmission Date: 20111010
  Serious: No
  Sender: FDA-Public Use
  Company Number: US-B.I. PHARMACEUTICALS,INC./RIDGEFIELD-2011-BP-12335BP

PATIENT
  Sex: Male

DRUGS (9)
  1. SPIRIVA [Suspect]
     Indication: CHRONIC OBSTRUCTIVE PULMONARY DISEASE
     Dosage: 18 MCG
     Route: 055
     Dates: start: 20100101
  2. NAPROXEN [Concomitant]
     Indication: INFLAMMATION
  3. ADVAIR DISKUS 100/50 [Concomitant]
     Indication: EMPHYSEMA
  4. ADVAIR DISKUS 100/50 [Concomitant]
     Indication: CHRONIC OBSTRUCTIVE PULMONARY DISEASE
  5. DULERA TABLET [Concomitant]
     Indication: CHRONIC OBSTRUCTIVE PULMONARY DISEASE
  6. DULERA TABLET [Concomitant]
     Indication: EMPHYSEMA
  7. PROAIR HFA [Concomitant]
     Indication: CHRONIC OBSTRUCTIVE PULMONARY DISEASE
  8. SPIRIVA [Suspect]
     Indication: EMPHYSEMA
  9. PROAIR HFA [Concomitant]
     Indication: EMPHYSEMA

REACTIONS (1)
  - DRUG SCREEN POSITIVE [None]
